FAERS Safety Report 4949713-3 (Version None)
Quarter: 2006Q1

REPORT INFORMATION
  Report Type: 
  Country: None (occurrence: None)
  Receive Date: 20060316
  Receipt Date: 20060228
  Transmission Date: 20060701
  Serious: Yes (Death, Hospitalization)
  Sender: FDA-Public Use
  Company Number: PAR_0535_2006

PATIENT
  Age: 55 Year
  Sex: Female

DRUGS (16)
  1. IBUPROFEN [Suspect]
     Dosage: DF
  2. ASPIRIN [Suspect]
     Dosage: DF
  3. CITALOPRAM [Suspect]
     Dosage: DF
  4. DIAZEPAM [Suspect]
     Dosage: DF
  5. AMITRIPTYLINE [Suspect]
     Dosage: DF
  6. METFORMIN [Suspect]
     Dosage: DF
  7. ESCITALOPRAM ORAL DROPS [Suspect]
     Dosage: DF PO
     Route: 048
  8. ACETAMINOPHEN W/ CODEINE [Suspect]
     Dosage: DF
  9. ACETAMINOPHEN AND HYDROCODONE BITARTRATE [Suspect]
     Dosage: DF
  10. NABUMETONE [Suspect]
     Dosage: DF
  11. ZOLPIDEM [Suspect]
     Dosage: DF
  12. CELECOXIB [Suspect]
     Dosage: DF
  13. METRONIDAZOLE [Suspect]
     Dosage: DF
  14. METAXALONE [Suspect]
     Dosage: DF
  15. BUPROPION HCL [Suspect]
     Dosage: DF
  16. PROMETH W/ CODEINE [Suspect]
     Dosage: DF

REACTIONS (17)
  - ALANINE AMINOTRANSFERASE INCREASED [None]
  - ASPARTATE AMINOTRANSFERASE INCREASED [None]
  - BLOOD BILIRUBIN INCREASED [None]
  - BLOOD CREATININE INCREASED [None]
  - BLOOD UREA INCREASED [None]
  - BODY TEMPERATURE INCREASED [None]
  - CARDIAC FAILURE CONGESTIVE [None]
  - CEREBRAL INFARCTION [None]
  - COMA [None]
  - COMPLETED SUICIDE [None]
  - DRUG SCREEN POSITIVE [None]
  - HYPERTENSION [None]
  - INTERNATIONAL NORMALISED RATIO INCREASED [None]
  - LOSS OF CONSCIOUSNESS [None]
  - PNEUMONIA [None]
  - POSTURING [None]
  - TROPONIN INCREASED [None]
